FAERS Safety Report 5075878-1 (Version None)
Quarter: 2006Q3

REPORT INFORMATION
  Report Type: 
  Country: None (occurrence: None)
  Receive Date: 20060807
  Receipt Date: 20060724
  Transmission Date: 20061208
  Serious: Yes (Hospitalization)
  Sender: FDA-Public Use
  Company Number: 2006091018

PATIENT
  Age: 74 Year
  Sex: Female
  Weight: 78.8 kg

DRUGS (8)
  1. AROMASIN [Suspect]
     Indication: BREAST CANCER
     Dosage: 25 MG (25 MG, 1 IN 1 D), ORAL
     Route: 048
     Dates: start: 20050110
  2. HYZAAR [Concomitant]
  3. LORTAB [Concomitant]
  4. FOSAMAX [Concomitant]
  5. CRESTOR [Concomitant]
  6. ACIPHEX [Concomitant]
  7. ASPIRIN [Concomitant]
  8. NITROGLYCERIN [Concomitant]

REACTIONS (3)
  - COMPRESSION FRACTURE [None]
  - INTERVERTEBRAL DISC DEGENERATION [None]
  - SCOLIOSIS [None]
